FAERS Safety Report 5047369-5 (Version None)
Quarter: 2006Q3

REPORT INFORMATION
  Report Type: 
  Country: None (occurrence: None)
  Receive Date: 20060703
  Receipt Date: 20060620
  Transmission Date: 20061208
  Serious: Yes (Death, Hospitalization)
  Sender: FDA-Public Use
  Company Number: HU-2006-013383

PATIENT
  Age: 71 Year
  Sex: Female

DRUGS (1)
  1. ULTRAVIST 370 [Suspect]
     Indication: COMPUTERISED TOMOGRAM ABDOMEN
     Dosage: 50 ML, 1 DOSE, X 10, INTRAVENOUS
     Route: 042
     Dates: start: 20060516, end: 20060516

REACTIONS (25)
  - ANAPHYLACTIC SHOCK [None]
  - ANEURYSM [None]
  - ANURIA [None]
  - ASTHENIA [None]
  - ATELECTASIS [None]
  - BLOOD PRESSURE INCREASED [None]
  - BRONCHIOLITIS [None]
  - BRONCHITIS [None]
  - CARDIOPULMONARY FAILURE [None]
  - CIRCULATORY COLLAPSE [None]
  - CONTRAST MEDIA REACTION [None]
  - CYANOSIS [None]
  - HEADACHE [None]
  - HYPOTENSION [None]
  - INTESTINAL ISCHAEMIA [None]
  - MALAISE [None]
  - MEDICAL DEVICE COMPLICATION [None]
  - MELAENA [None]
  - MYOCARDIAL ISCHAEMIA [None]
  - PNEUMONIA [None]
  - RESPIRATORY FAILURE [None]
  - TACHYPNOEA [None]
  - TRACHEOBRONCHITIS [None]
  - TYPE IV HYPERSENSITIVITY REACTION [None]
  - VENTRICULAR HYPERTROPHY [None]
